FAERS Safety Report 17507571 (Version 1)
Quarter: 2020Q1

REPORT INFORMATION
  Report Type: Spontaneous
  Country: US (occurrence: US)
  Receive Date: 20200306
  Receipt Date: 20200306
  Transmission Date: 20200409
  Serious: No
  Sender: FDA-Public Use
  Company Number: US-AUROBINDO-AUR-APL-2019-041674

PATIENT
  Age: 73 Year
  Sex: Male

DRUGS (5)
  1. LEVETIRACETAM TABLETS 1000 MG [Suspect]
     Active Substance: LEVETIRACETAM
     Indication: INFLAMMATION OF WOUND
  2. LIPITOR [Concomitant]
     Active Substance: ATORVASTATIN CALCIUM
     Indication: PRODUCT USED FOR UNKNOWN INDICATION
     Dosage: UNK
     Route: 065
  3. LEVETIRACETAM TABLETS 1000 MG [Suspect]
     Active Substance: LEVETIRACETAM
     Indication: RADIATION NECROSIS
     Dosage: 1000 MILLIGRAM, TWO TIMES A DAY
     Route: 048
     Dates: start: 20190603
  4. DEXAMETHASONE. [Concomitant]
     Active Substance: DEXAMETHASONE
     Indication: PRODUCT USED FOR UNKNOWN INDICATION
     Dosage: UNK
     Route: 065
  5. TRENTAL [Concomitant]
     Active Substance: PENTOXIFYLLINE
     Indication: PRODUCT USED FOR UNKNOWN INDICATION
     Dosage: UNK
     Route: 065

REACTIONS (6)
  - Anxiety [Unknown]
  - Headache [Unknown]
  - Dizziness [Unknown]
  - Aggression [Unknown]
  - Agitation [Unknown]
  - Neck pain [Unknown]
